FAERS Safety Report 13861682 (Version 2)
Quarter: 2018Q1

REPORT INFORMATION
  Report Type: Report from Study
  Country: BR (occurrence: BR)
  Receive Date: 20170811
  Receipt Date: 20180202
  Transmission Date: 20180508
  Serious: No
  Sender: FDA-Public Use
  Company Number: BR-TAKEDA-2017TUS013157

PATIENT
  Age: 54 Year
  Sex: Male
  Weight: 89 kg

DRUGS (5)
  1. VEDOLIZUMAB [Suspect]
     Active Substance: VEDOLIZUMAB
     Indication: CROHN^S DISEASE
     Dosage: UNK
     Route: 042
     Dates: start: 20161108
  2. CIPROFIBRATO [Concomitant]
     Active Substance: CIPROFIBRATE
     Indication: BLOOD TRIGLYCERIDES
     Dosage: UNK
     Route: 048
  3. ALEKTOS [Suspect]
     Active Substance: BILASTINE
     Indication: PRURITUS GENERALISED
     Dosage: UNK UNK, QD
     Route: 048
  4. IMOSEC [Concomitant]
     Active Substance: LOPERAMIDE
     Dosage: UNK
  5. BENICAR [Concomitant]
     Active Substance: OLMESARTAN MEDOXOMIL
     Dosage: 40 MG, QD
     Route: 048

REACTIONS (7)
  - Off label use [Unknown]
  - Blood iron decreased [Recovered/Resolved]
  - Histamine level increased [Recovered/Resolved]
  - Pruritus generalised [Recovered/Resolved]
  - Vitamin B12 decreased [Recovered/Resolved]
  - Hypoaesthesia oral [Recovered/Resolved]
  - Chest pain [Recovered/Resolved]

NARRATIVE: CASE EVENT DATE: 201704
